FAERS Safety Report 9818881 (Version 1)
Quarter: 2013Q4

REPORT INFORMATION
  Report Type: Spontaneous
  Country: US (occurrence: None)
  Receive Date: 20131223
  Receipt Date: 20131223
  Transmission Date: 20140711
  Serious: No
  Sender: FDA-Public Use
  Company Number: 220465

PATIENT
  Age: 51 Year
  Sex: Female

DRUGS (4)
  1. PICATO [Suspect]
     Indication: ACTINIC KERATOSIS
     Route: 061
     Dates: start: 20130130, end: 20130201
  2. NEOSPORIN (NEOTRACIN/00038301) [Concomitant]
  3. VALTREX (VALACICLOVIR HYDROCHLORIDE) (1G) [Concomitant]
  4. ANTIBIOTICS (ANTIBIOTICS) [Concomitant]

REACTIONS (8)
  - Application site vesicles [None]
  - Application site pain [None]
  - Application site pain [None]
  - Application site exfoliation [None]
  - Dyskinesia [None]
  - Dyskinesia [None]
  - Drug administered at inappropriate site [None]
  - Wrong technique in drug usage process [None]
